FAERS Safety Report 8086492-8 (Version None)
Quarter: 2012Q1

REPORT INFORMATION
  Report Type: 
  Country: None (occurrence: None)
  Receive Date: 20120128
  Receipt Date: 20110506
  Transmission Date: 20120608
  Serious: No
  Sender: FDA-Public Use
  Company Number: US-ABBOTT-11P-163-0724038-00

PATIENT
  Age: 44 Year
  Sex: Male

DRUGS (5)
  1. VENLAFAXINE [Concomitant]
     Indication: HYPERTENSION
     Dosage: 75MG DAILY
  2. AMLODIPINE [Concomitant]
     Indication: BLOOD PRESSURE
     Dosage: 5MG DAILY
  3. PRAVASTATIN [Concomitant]
     Indication: BLOOD CHOLESTEROL INCREASED
  4. HUMIRA [Suspect]
     Indication: PSORIASIS
     Dates: start: 20110401
  5. LISINOPRIL AND HYDROCHLOROTHIAZIDE [Concomitant]
     Indication: BLOOD PRESSURE
     Dosage: 20/25MG DAILY

REACTIONS (4)
  - WEIGHT DECREASED [None]
  - DIARRHOEA [None]
  - HEADACHE [None]
  - INFLUENZA LIKE ILLNESS [None]
